FAERS Safety Report 7704569-0 (Version None)
Quarter: 2011Q3

REPORT INFORMATION
  Report Type: 
  Country: None (occurrence: None)
  Receive Date: 20110823
  Receipt Date: 20110224
  Transmission Date: 20111222
  Serious: Yes (Hospitalization)
  Sender: FDA-Public Use
  Company Number: US-GLAXOSMITHKLINE-A0915681A

PATIENT
  Age: 69 Year
  Sex: Male

DRUGS (1)
  1. AVANDIA [Suspect]
     Indication: DIABETES MELLITUS
     Dosage: 8MG PER DAY
     Route: 048
     Dates: start: 20020101, end: 20071001

REACTIONS (7)
  - CORONARY ARTERY BYPASS [None]
  - ACUTE CORONARY SYNDROME [None]
  - ANGIOPLASTY [None]
  - CORONARY ARTERY DISEASE [None]
  - STENT PLACEMENT [None]
  - AORTIC VALVE REPLACEMENT [None]
  - CARDIAC FAILURE CONGESTIVE [None]
